FAERS Safety Report 5660247-3 (Version None)
Quarter: 2008Q1

REPORT INFORMATION
  Report Type: 
  Country: None (occurrence: None)
  Receive Date: 20080212
  Receipt Date: 20070501
  Transmission Date: 20080703
  Serious: Yes (Hospitalization)
  Sender: FDA-Public Use
  Company Number: MC200700355

PATIENT
  Age: 84 Year
  Sex: Female
  Weight: 90.7 kg

DRUGS (3)
  1. ANGIOMAX [Suspect]
     Indication: PERCUTANEOUS CORONARY INTERVENTION
     Dosage: 13.5 ML, BOLUS, IV BOLUS; 31.5 ML, HR, INTRAVENOUS
     Route: 040
     Dates: start: 20070501, end: 20070501
  2. ANGIOMAX [Suspect]
     Indication: PERCUTANEOUS CORONARY INTERVENTION
     Dosage: 13.5 ML, BOLUS, IV BOLUS; 31.5 ML, HR, INTRAVENOUS
     Route: 040
     Dates: start: 20070501
  3. CLOPIDOGREL [Suspect]
     Dosage: 600 MG, SINGLE, ORAL
     Route: 048
     Dates: start: 20070501

REACTIONS (1)
  - CATHETER SITE HAEMORRHAGE [None]
